FAERS Safety Report 8061193-0 (Version None)
Quarter: 2012Q1

REPORT INFORMATION
  Report Type: 
  Country: None (occurrence: None)
  Receive Date: 20120120
  Receipt Date: 20120111
  Transmission Date: 20120608
  Serious: Yes (Hospitalization, Other)
  Sender: FDA-Public Use
  Company Number: BR-ASTRAZENECA-2012SE02724

PATIENT
  Age: 71 Year
  Sex: Male
  Weight: 74 kg

DRUGS (5)
  1. MARCUMAR [Concomitant]
     Indication: CATARACT
  2. SUSTRATE [Concomitant]
     Indication: CARDIAC DISORDER
  3. ATACAND [Suspect]
     Indication: HYPERTENSION
     Dosage: 16 MG
     Route: 048
     Dates: start: 20070101, end: 20111001
  4. METOPROLOL SUCCINATE [Suspect]
     Indication: CARDIAC DISORDER
     Route: 048
  5. PRADAXA [Concomitant]
     Indication: CATARACT

REACTIONS (2)
  - CATARACT [None]
  - TRANSIENT ISCHAEMIC ATTACK [None]
